FAERS Safety Report 5998006-4 (Version None)
Quarter: 2008Q4

REPORT INFORMATION
  Report Type: 
  Country: None (occurrence: None)
  Receive Date: 20081211
  Receipt Date: 20081126
  Transmission Date: 20090506
  Serious: Yes (Hospitalization)
  Sender: FDA-Public Use
  Company Number: KV200800643

PATIENT
  Age: 56 Year
  Sex: Male
  Weight: 78 kg

DRUGS (2)
  1. MORPHINE SULFATE [Suspect]
     Indication: PAIN
     Dosage: 15 MG, BID, ORAL
     Route: 048
     Dates: start: 20070101, end: 20071101
  2. ISOSORBIDE MONONITRATE [Suspect]
     Indication: CARDIAC DISORDER
     Dosage: 30 MG, BID, ORAL
     Route: 048
     Dates: start: 20070101

REACTIONS (4)
  - CONFUSIONAL STATE [None]
  - DIZZINESS [None]
  - PRODUCT QUALITY ISSUE [None]
  - RENAL FAILURE [None]
